FAERS Safety Report 6940881-0 (Version None)
Quarter: 2010Q3

REPORT INFORMATION
  Report Type: 
  Country: None (occurrence: None)
  Receive Date: 20100825
  Receipt Date: 20100816
  Transmission Date: 20110219
  Serious: Yes (Hospitalization)
  Sender: FDA-Public Use
  Company Number: US-ASTRAZENECA-2010SE38330

PATIENT
  Sex: Male

DRUGS (4)
  1. CRESTOR [Suspect]
     Indication: HYPERCHOLESTEROLAEMIA
     Route: 048
     Dates: start: 20100701, end: 20100801
  2. LISINOPRIL [Concomitant]
     Indication: BLOOD PRESSURE
  3. METFORMIN HCL [Concomitant]
     Indication: DIABETES MELLITUS
  4. LOPRESSOR [Concomitant]
     Indication: BLOOD PRESSURE

REACTIONS (7)
  - ABDOMINAL PAIN [None]
  - APHAGIA [None]
  - ASTHENIA [None]
  - BEDRIDDEN [None]
  - BLOOD URINE PRESENT [None]
  - NAUSEA [None]
  - VOMITING [None]
